FAERS Safety Report 12872057 (Version 1)
Quarter: 2016Q4

REPORT INFORMATION
  Report Type: Spontaneous
  Country: US (occurrence: US)
  Receive Date: 20161021
  Receipt Date: 20161021
  Transmission Date: 20170207
  Serious: No
  Sender: FDA-Public Use
  Company Number: US-PURDUE-USA-2016-0132838

PATIENT
  Sex: Male
  Weight: 68.4 kg

DRUGS (3)
  1. OXYCONTIN [Suspect]
     Active Substance: OXYCODONE HYDROCHLORIDE
     Indication: ARTHRALGIA
     Dosage: 80 MG, 2-3 TIMES PER DAY
     Route: 048
  2. DIAZEPAM. [Concomitant]
     Active Substance: DIAZEPAM
     Indication: PANIC REACTION
     Dosage: 5 MG, 1-2 AS NEEDED
  3. DIAZEPAM. [Concomitant]
     Active Substance: DIAZEPAM
     Indication: MUSCLE SPASMS

REACTIONS (3)
  - Unevaluable event [Unknown]
  - Drug ineffective [Unknown]
  - Off label use [Recovered/Resolved]
